FAERS Safety Report 13994723 (Version 1)
Quarter: 2017Q3

REPORT INFORMATION
  Report Type: Spontaneous
  Country: US (occurrence: US)
  Receive Date: 20170921
  Receipt Date: 20170921
  Transmission Date: 20171128
  Serious: No
  Sender: FDA-Public Use
  Company Number: US-TAKEDA-2017TUS019160

PATIENT
  Age: 67 Year
  Sex: Male

DRUGS (1)
  1. ULORIC [Suspect]
     Active Substance: FEBUXOSTAT
     Indication: GOUT
     Dosage: 40 MG, QD
     Route: 048
     Dates: start: 201709, end: 201709

REACTIONS (5)
  - Pain [Unknown]
  - Anxiety [Unknown]
  - Headache [Unknown]
  - Hallucination [Unknown]
  - Dizziness [Unknown]
